FAERS Safety Report 17776243 (Version 1)
Quarter: 2020Q2

REPORT INFORMATION
  Report Type: Spontaneous
  Country: US (occurrence: US)
  Receive Date: 20200513
  Receipt Date: 20200513
  Transmission Date: 20200714
  Serious: Yes (Other)
  Sender: FDA-Public Use
  Company Number: US-PFIZER INC-2020188954

PATIENT
  Age: 16 Year
  Sex: Male
  Weight: 51.26 kg

DRUGS (6)
  1. LEVOTHYROXINE. [Concomitant]
     Active Substance: LEVOTHYROXINE
     Indication: THYROID DISORDER
     Dosage: 100 MG, DAILY (100MG 1 TABLET BY MOUTH DAILY)
     Route: 048
     Dates: start: 201811
  2. GENOTROPIN MQ [Suspect]
     Active Substance: SOMATROPIN
     Indication: GROWTH HORMONE DEFICIENCY
     Dosage: UNK
     Dates: start: 2018, end: 201911
  3. VITAMIN D3 [Concomitant]
     Active Substance: CHOLECALCIFEROL
     Indication: BONE DEVELOPMENT ABNORMAL
     Dosage: 10000 IU, DAILY
     Dates: start: 201811
  4. DESMOPRESSIN [Concomitant]
     Active Substance: DESMOPRESSIN
     Indication: DIABETES INSIPIDUS
     Dosage: 5 DF, DAILY
     Dates: start: 20190115
  5. TESTOSTERONE. [Concomitant]
     Active Substance: TESTOSTERONE
     Indication: ANDROGEN DEFICIENCY
     Dosage: 25 MG, MONTHLY
     Dates: start: 201811
  6. HYDROCORTISONE. [Concomitant]
     Active Substance: HYDROCORTISONE
     Indication: CORTISOL DEFICIENCY
     Dosage: 2X/DAY(25MG 1 AND 1/2 TABLETS BY MOUTH IN THE MORNING AND 1 TABLET BY MOUTH AT NIGHT)
     Route: 048
     Dates: start: 201811

REACTIONS (1)
  - Neoplasm [Unknown]

NARRATIVE: CASE EVENT DATE: 2018
